FAERS Safety Report 10750420 (Version 2)
Quarter: 2015Q1

REPORT INFORMATION
  Report Type: Report from Study
  Country: AU (occurrence: AU)
  Receive Date: 20150130
  Receipt Date: 20150220
  Transmission Date: 20150721
  Serious: Yes (Other)
  Sender: FDA-Public Use
  Company Number: AU-ROCHE-1405929

PATIENT
  Age: 66 Year
  Sex: Female

DRUGS (3)
  1. ATACAND [Concomitant]
     Active Substance: CANDESARTAN CILEXETIL
     Indication: HYPERTENSION
     Dosage: STARTED 2 YEAR AGO
     Route: 048
  2. ACTEMRA [Suspect]
     Active Substance: TOCILIZUMAB
     Route: 042
     Dates: start: 20150127
  3. ACTEMRA [Suspect]
     Active Substance: TOCILIZUMAB
     Indication: RHEUMATOID ARTHRITIS
     Route: 042
     Dates: start: 20111011

REACTIONS (11)
  - Fall [Unknown]
  - Gait disturbance [Unknown]
  - Frustration [Unknown]
  - Asthenia [Unknown]
  - Speech disorder [Unknown]
  - Dizziness [Unknown]
  - Dyspnoea [Unknown]
  - Balance disorder [Unknown]
  - Disturbance in attention [Unknown]
  - Fatigue [Unknown]
  - Agitation [Unknown]

NARRATIVE: CASE EVENT DATE: 201401
